FAERS Safety Report 11746435 (Version 2)
Quarter: 2017Q2

REPORT INFORMATION
  Report Type: Report from Study
  Country: IT (occurrence: IT)
  Receive Date: 20151117
  Receipt Date: 20170413
  Transmission Date: 20170829
  Serious: Yes (Death, Other)
  Sender: FDA-Public Use
  Company Number: IT-MYLANLABS-2015M1038840

PATIENT

DRUGS (3)
  1. LEVETIRACETAM. [Suspect]
     Active Substance: LEVETIRACETAM
     Dosage: 1000 MG, QD
     Route: 064
     Dates: start: 20050101
  2. LEVETIRACETAM. [Suspect]
     Active Substance: LEVETIRACETAM
     Indication: EPILEPSY
     Dosage: 1500 MG, QD
     Route: 064
     Dates: start: 20030501, end: 20041231
  3. FOLIC ACID. [Concomitant]
     Active Substance: FOLIC ACID
     Indication: PRODUCT USED FOR UNKNOWN INDICATION
     Dosage: UNK
     Dates: start: 20041231, end: 20050509

REACTIONS (2)
  - Stillbirth [Fatal]
  - Foetal exposure during pregnancy [Fatal]
